FAERS Safety Report 8382811 (Version 2)
Quarter: 2015Q1

REPORT INFORMATION
  Report Type: Report from Study
  Country: US (occurrence: US)
  Receive Date: 20120201
  Receipt Date: 20150225
  Transmission Date: 20150721
  Serious: Yes (Death)
  Sender: FDA-Public Use
  Company Number: US-ROCHE-1035065

PATIENT
  Sex: Female

DRUGS (7)
  1. LEXAPRO [Concomitant]
     Active Substance: ESCITALOPRAM OXALATE
  2. COMPAZINE [Concomitant]
     Active Substance: PROCHLORPERAZINE MALEATE
     Dosage: PM
     Route: 065
  3. ADRIAMYCIN [Concomitant]
     Active Substance: DOXORUBICIN HYDROCHLORIDE
     Route: 042
  4. AVASTIN [Suspect]
     Active Substance: BEVACIZUMAB
     Indication: BREAST CANCER FEMALE
     Route: 042
     Dates: start: 20070620
  5. PROCRIT [Concomitant]
     Active Substance: ERYTHROPOIETIN
  6. ARANESP [Concomitant]
     Active Substance: DARBEPOETIN ALFA
  7. CYTOXAN [Concomitant]
     Active Substance: CYCLOPHOSPHAMIDE
     Route: 042

REACTIONS (11)
  - Disease progression [Unknown]
  - Heart rate increased [Unknown]
  - Pleural effusion [Unknown]
  - Oedema peripheral [Unknown]
  - Death [Fatal]
  - Asthenia [Unknown]
  - Nausea [Unknown]
  - Pain [Unknown]
  - Stomatitis [Unknown]
  - Fatigue [Unknown]
  - Off label use [Unknown]
